FAERS Safety Report 5170177-1 (Version None)
Quarter: 2006Q4

REPORT INFORMATION
  Report Type: 
  Country: None (occurrence: None)
  Receive Date: 20061204
  Receipt Date: 20061124
  Transmission Date: 20070319
  Serious: Yes (Other)
  Sender: FDA-Public Use
  Company Number: 2006146586

PATIENT
  Age: 50 Year
  Sex: Female

DRUGS (3)
  1. LIPITOR [Suspect]
     Dosage: ORAL
     Route: 048
  2. NORVASC [Concomitant]
  3. PHENYTOIN [Concomitant]

REACTIONS (2)
  - CONVULSION [None]
  - EPILEPSY [None]
